FAERS Safety Report 8377807-1 (Version None)
Quarter: 2012Q2

REPORT INFORMATION
  Report Type: 
  Country: None (occurrence: None)
  Receive Date: 20120522
  Receipt Date: 20120510
  Transmission Date: 20120825
  Serious: Yes (Other)
  Sender: FDA-Public Use
  Company Number: SE-JNJFOC-20120511476

PATIENT
  Age: 20 Year
  Sex: Male

DRUGS (3)
  1. FOLIC ACID [Concomitant]
  2. REMICADE [Suspect]
     Indication: CROHN'S DISEASE
     Route: 042
     Dates: start: 20120427
  3. PENTASA [Concomitant]

REACTIONS (3)
  - DYSPNOEA [None]
  - BLOOD PRESSURE INCREASED [None]
  - FLUSHING [None]
